FAERS Safety Report 9986777 (Version 1)
Quarter: 2014Q1

REPORT INFORMATION
  Report Type: Spontaneous
  Country: US (occurrence: US)
  Receive Date: 20140307
  Receipt Date: 20140307
  Transmission Date: 20141002
  Serious: Yes (Other)
  Sender: FDA-Public Use
  Company Number: US-FRI-1000060353

PATIENT
  Age: 77 Year
  Sex: Male

DRUGS (2)
  1. LINZESS [Suspect]
     Indication: CONSTIPATION
     Dosage: 145MCG
     Route: 048
     Dates: start: 20140212, end: 20140218
  2. LINZESS [Suspect]
     Dosage: 290MCG
     Route: 048
     Dates: start: 20140219, end: 20140226

REACTIONS (2)
  - Orthostatic hypotension [Recovered/Resolved]
  - Fall [Recovered/Resolved]
